FAERS Safety Report 20543090 (Version 8)
Quarter: 2023Q2

REPORT INFORMATION
  Report Type: Spontaneous
  Country: US (occurrence: US)
  Receive Date: 20220302
  Receipt Date: 20230505
  Transmission Date: 20230722
  Serious: Yes (Other)
  Sender: FDA-Public Use
  Company Number: US-PFIZER INC-202101041329

PATIENT
  Age: 48 Year
  Sex: Female

DRUGS (6)
  1. XELJANZ [Suspect]
     Active Substance: TOFACITINIB CITRATE
     Indication: Rheumatoid arthritis
     Dosage: 5 MG, 2X/DAY
     Route: 048
     Dates: start: 20190724, end: 20220921
  2. XELJANZ [Suspect]
     Active Substance: TOFACITINIB CITRATE
     Dosage: 5 MG, 2X/DAY
     Route: 048
     Dates: start: 202209
  3. XELJANZ [Suspect]
     Active Substance: TOFACITINIB CITRATE
     Dosage: 5 MG, DAILY (PO QD)
     Route: 048
  4. GABAPENTIN [Concomitant]
     Active Substance: GABAPENTIN
     Dosage: UNK
  5. HYDROCODONE [Concomitant]
     Active Substance: HYDROCODONE
     Dosage: UNK
  6. METHOCARBAMOL [Concomitant]
     Active Substance: METHOCARBAMOL
     Dosage: UNK

REACTIONS (30)
  - Intervertebral disc protrusion [Unknown]
  - Condition aggravated [Unknown]
  - Back pain [Unknown]
  - COVID-19 [Unknown]
  - SARS-CoV-2 test positive [Recovered/Resolved]
  - Oxygen saturation decreased [Recovering/Resolving]
  - Product dose omission in error [Unknown]
  - Gastroenteritis viral [Recovered/Resolved]
  - Enterocolitis viral [Recovered/Resolved]
  - Sacral pain [Unknown]
  - Bursitis [Unknown]
  - Weight decreased [Unknown]
  - Tendonitis [Unknown]
  - Hypoaesthesia [Unknown]
  - Arthritis [Recovering/Resolving]
  - Frustration tolerance decreased [Unknown]
  - Discouragement [Unknown]
  - Fatigue [Recovering/Resolving]
  - Contusion [Unknown]
  - Pain in extremity [Recovering/Resolving]
  - Fall [Unknown]
  - Somnolence [Unknown]
  - Decreased appetite [Recovered/Resolved]
  - Dyspnoea [Recovering/Resolving]
  - Pain [Recovering/Resolving]
  - Arthralgia [Unknown]
  - Hypersensitivity [Not Recovered/Not Resolved]
  - Sinusitis [Unknown]
  - Sensitivity to weather change [Unknown]
  - Product prescribing issue [Unknown]

NARRATIVE: CASE EVENT DATE: 20210101
